FAERS Safety Report 23462350 (Version 2)
Quarter: 2024Q1

REPORT INFORMATION
  Report Type: Spontaneous
  Country: US (occurrence: US)
  Receive Date: 20240131
  Receipt Date: 20240314
  Transmission Date: 20240410
  Serious: Yes (Hospitalization)
  Sender: FDA-Public Use
  Company Number: US-TEVA-VS-3136496

PATIENT
  Age: 9 Day
  Sex: Male

DRUGS (2)
  1. FLUDROCORTISONE [Suspect]
     Active Substance: FLUDROCORTISONE
     Indication: Hyponatraemia
     Route: 065
  2. SODIUM CHLORIDE [Concomitant]
     Active Substance: SODIUM CHLORIDE
     Indication: Hyponatraemia
     Dosage: STARTED RECEIVING AT 2.5MEQ/DAY
     Route: 065

REACTIONS (1)
  - Hypercalcaemia [Recovered/Resolved]
